FAERS Safety Report 13540158 (Version 3)
Quarter: 2017Q3

REPORT INFORMATION
  Report Type: Spontaneous
  Country: GB (occurrence: GB)
  Receive Date: 20170512
  Receipt Date: 20170725
  Transmission Date: 20171127
  Serious: No
  Sender: FDA-Public Use
  Company Number: ALCN2017GB003235

PATIENT
  Age: 93 Year

DRUGS (1)
  1. ISOPTO ALKALINE [Suspect]
     Active Substance: HYPROMELLOSES
     Indication: DRY EYE
     Route: 047

REACTIONS (3)
  - Foreign body sensation in eyes [Unknown]
  - Drug ineffective [Unknown]
  - Vision blurred [Unknown]
